FAERS Safety Report 11075766 (Version 1)
Quarter: 2015Q2

REPORT INFORMATION
  Report Type: Spontaneous
  Country: US (occurrence: US)
  Receive Date: 20150429
  Receipt Date: 20150429
  Transmission Date: 20150821
  Serious: Yes (Disabling)
  Sender: FDA-Public Use
  Company Number: US-HORIZON-DUE-0006-2015

PATIENT
  Age: 58 Year
  Sex: Female

DRUGS (1)
  1. DUEXIS [Suspect]
     Active Substance: FAMOTIDINE\IBUPROFEN
     Indication: PAIN
     Dosage: REDUCED TO 1 TABLET OD
     Dates: start: 20150212

REACTIONS (5)
  - Off label use [Unknown]
  - Headache [Recovered/Resolved]
  - Eye irritation [Recovered/Resolved]
  - Drug dose omission [Unknown]
  - Diarrhoea [Recovered/Resolved]

NARRATIVE: CASE EVENT DATE: 20150214
